FAERS Safety Report 18801721 (Version 2)
Quarter: 2021Q1

REPORT INFORMATION
  Report Type: Spontaneous
  Country: IT (occurrence: IT)
  Receive Date: 20210128
  Receipt Date: 20210223
  Transmission Date: 20210419
  Serious: Yes (Death, Other)
  Sender: FDA-Public Use
  Company Number: IT-AMGEN-ITASP2021010042

PATIENT
  Age: 62 Year
  Sex: Female
  Weight: 50 kg

DRUGS (3)
  1. DEXAMETHASONE. [Concomitant]
     Active Substance: DEXAMETHASONE
     Indication: PLASMA CELL MYELOMA
     Dosage: UNK, 2 DAYS A WEEK FOR THREE WEEKS EVERY FOUR
     Route: 042
  2. CARFILZOMIB [Suspect]
     Active Substance: CARFILZOMIB
     Indication: PLASMA CELL MYELOMA
     Dosage: 20 MILLIGRAM/SQ. METER (31 MG/DL), DAY 1, 2
     Route: 042
     Dates: start: 20200417
  3. CARFILZOMIB [Suspect]
     Active Substance: CARFILZOMIB
     Dosage: 27 MILLIGRAM/SQ. METER (41 MG/DL), DAY 8, 9, EVERY 28 DAYS
     Route: 042
     Dates: end: 20200425

REACTIONS (4)
  - Death [Fatal]
  - Respiratory failure [Unknown]
  - Pulmonary mycosis [Unknown]
  - Therapy partial responder [Unknown]

NARRATIVE: CASE EVENT DATE: 20200429
